FAERS Safety Report 9492518 (Version 3)
Quarter: 2016Q2

REPORT INFORMATION
  Report Type: Report from Study
  Country: US (occurrence: US)
  Receive Date: 20130830
  Receipt Date: 20160408
  Transmission Date: 20160815
  Serious: Yes (Other)
  Sender: FDA-Public Use
  Company Number: US-ROCHE-1266854

PATIENT
  Sex: Female

DRUGS (10)
  1. TIMOLOL MALEATE. [Concomitant]
     Active Substance: TIMOLOL MALEATE
     Dosage: BID BOTH EYES
     Route: 047
  2. METOPROLOL TARTRATE. [Concomitant]
     Active Substance: METOPROLOL TARTRATE
     Dosage: BID WITH MEALS
     Route: 048
  3. METFORMIN [Concomitant]
     Active Substance: METFORMIN HYDROCHLORIDE
     Dosage: 1 TAB WITH EVENING MEAL
     Route: 065
  4. BRIMONIDINE [Concomitant]
     Active Substance: BRIMONIDINE TARTRATE
     Dosage: 1 DROP BID LEFT EYE
     Route: 047
  5. TRUSOPT [Concomitant]
     Active Substance: DORZOLAMIDE HYDROCHLORIDE
     Route: 047
  6. LUCENTIS [Suspect]
     Active Substance: RANIBIZUMAB
     Indication: DIABETIC RETINOPATHY
     Dosage: BOTH EYES
     Route: 050
     Dates: start: 20130723
  7. LATANOPROST. [Concomitant]
     Active Substance: LATANOPROST
     Dosage: 1 DROP AT BEDTIME LEFT EYE
     Route: 065
  8. ASPIRIN. [Concomitant]
     Active Substance: ASPIRIN
     Route: 065
  9. GLIPIZIDE. [Concomitant]
     Active Substance: GLIPIZIDE
     Route: 065
  10. LISINOPRIL. [Concomitant]
     Active Substance: LISINOPRIL
     Route: 065

REACTIONS (10)
  - Vitreous floaters [Unknown]
  - Photophobia [Unknown]
  - Visual impairment [Unknown]
  - Pain [Unknown]
  - Visual acuity reduced [Unknown]
  - Glaucoma [Unknown]
  - Vision blurred [Unknown]
  - Glare [Unknown]
  - Foreign body sensation in eyes [Unknown]
  - Night blindness [Unknown]
